FAERS Safety Report 16745103 (Version 2)
Quarter: 2019Q3

REPORT INFORMATION
  Report Type: Spontaneous
  Country: JP (occurrence: JP)
  Receive Date: 20190827
  Receipt Date: 20190913
  Transmission Date: 20191005
  Serious: Yes (Hospitalization, Other)
  Sender: FDA-Public Use
  Company Number: JP-GLAXOSMITHKLINE-JP2019JPN132867

PATIENT
  Age: 64 Year
  Sex: Female
  Weight: 55 kg

DRUGS (10)
  1. SENNOSIDES TABLET [Concomitant]
     Indication: CONSTIPATION
     Dosage: 12 MG, QD
     Route: 048
  2. BAYASPIRIN TABLETS [Concomitant]
     Indication: CORONARY ANGIOPLASTY
     Dosage: 100 MG, QD
     Route: 048
  3. CRESTOR [Concomitant]
     Active Substance: ROSUVASTATIN CALCIUM
     Indication: HYPERLIPIDAEMIA
     Dosage: 5 MG, QD
     Route: 048
  4. HUMULIN R INJECTION [Concomitant]
     Dosage: 50 UNITS 150 ML (CONTINUOUS INFUSION ADJUSTED ACCORDING TO BLOOD SUGAR LEVEL)
     Route: 042
  5. ZETIA TABLETS [Concomitant]
     Indication: HYPERLIPIDAEMIA
     Dosage: 10 MG, QD
     Route: 048
  6. TRESIBA [Concomitant]
     Active Substance: INSULIN DEGLUDEC
     Dosage: 13 UNITS IN THE MORNING
  7. HUMALOG PEN [Concomitant]
     Active Substance: INSULIN LISPRO
     Dosage: MORNING: 3 UNITS, AFTERNOON: 5 UNITS, EVENING: 5 UNITS
  8. ACYCLOVIR INTRAVENOUS INFUSION [Concomitant]
     Indication: HERPES ZOSTER
     Dosage: UNK
     Route: 041
     Dates: start: 2019
  9. VALTREX [Suspect]
     Active Substance: VALACYCLOVIR HYDROCHLORIDE
     Indication: HERPES ZOSTER
     Dosage: 1000 MG, QD
     Route: 048
     Dates: start: 20190718, end: 20190721
  10. FEBURIC TABLETS [Concomitant]
     Active Substance: FEBUXOSTAT
     Indication: HYPERURICAEMIA
     Dosage: 40 MG, QD
     Route: 048

REACTIONS (12)
  - Decreased appetite [Recovered/Resolved]
  - Diabetic ketoacidosis [Recovered/Resolved]
  - Vomiting [Unknown]
  - Dehydration [Recovering/Resolving]
  - Dysarthria [Unknown]
  - Acute kidney injury [Recovered/Resolved]
  - Nausea [Unknown]
  - Pain [Not Recovered/Not Resolved]
  - Toxic encephalopathy [Recovered/Resolved]
  - Drug level increased [Recovered/Resolved]
  - Herpes zoster meningitis [Unknown]
  - Altered state of consciousness [Recovered/Resolved]

NARRATIVE: CASE EVENT DATE: 201907
